FAERS Safety Report 19732348 (Version 1)
Quarter: 2021Q3

REPORT INFORMATION
  Report Type: Spontaneous
  Country: US (occurrence: US)
  Receive Date: 20210820
  Receipt Date: 20210820
  Transmission Date: 20211014
  Serious: No
  Sender: FDA-Public Use
  Company Number: None

PATIENT
  Sex: Male

DRUGS (1)
  1. JYNARQUE [Suspect]
     Active Substance: TOLVAPTAN
     Indication: CONGENITAL CYSTIC KIDNEY DISEASE

REACTIONS (6)
  - Loss of personal independence in daily activities [None]
  - Balance disorder [None]
  - Impaired work ability [None]
  - Nocturia [None]
  - Pollakiuria [None]
  - Fatigue [None]

NARRATIVE: CASE EVENT DATE: 20210412
